FAERS Safety Report 23580530 (Version 1)
Quarter: 2024Q1

REPORT INFORMATION
  Report Type: Spontaneous
  Country: DE (occurrence: DE)
  Receive Date: 20240229
  Receipt Date: 20240229
  Transmission Date: 20240410
  Serious: Yes (Life-Threatening, Other)
  Sender: FDA-Public Use
  Company Number: DE-ROCHE-2654442

PATIENT
  Age: 69 Year
  Sex: Male

DRUGS (12)
  1. AZATHIOPRINE [Suspect]
     Active Substance: AZATHIOPRINE
     Dosage: 150 MG, QD
     Route: 065
     Dates: start: 201012, end: 201110
  2. AZATHIOPRINE [Suspect]
     Active Substance: AZATHIOPRINE
     Indication: Pemphigus
     Dosage: UNK
     Route: 065
     Dates: start: 201012, end: 201110
  3. CYCLOPHOSPHAMIDE [Suspect]
     Active Substance: CYCLOPHOSPHAMIDE
     Indication: Pemphigus
     Dosage: 3.6 GRAM CUMULATIVE DOSE
     Route: 065
     Dates: start: 201303
  4. MYCOPHENOLATE MOFETIL [Suspect]
     Active Substance: MYCOPHENOLATE MOFETIL
     Indication: Pemphigus
     Dosage: 2 G, QD
     Route: 065
     Dates: start: 201111, end: 201302
  5. MYCOPHENOLATE MOFETIL [Suspect]
     Active Substance: MYCOPHENOLATE MOFETIL
     Dosage: 2.5 G, QD
     Route: 065
     Dates: start: 201302, end: 201303
  6. MYCOPHENOLATE MOFETIL [Suspect]
     Active Substance: MYCOPHENOLATE MOFETIL
     Dosage: 2.5 G, QD
     Route: 065
     Dates: start: 201304, end: 201803
  7. PREDNISOLONE [Suspect]
     Active Substance: PREDNISOLONE
     Dosage: 20-25 MG/DAY
     Route: 065
     Dates: start: 201801
  8. PREDNISOLONE [Suspect]
     Active Substance: PREDNISOLONE
     Dosage: 1 MG/KG/BODY WEIGHT (BW) 5-7.5 MG/DAY
     Route: 065
     Dates: start: 2010
  9. PREDNISOLONE [Suspect]
     Active Substance: PREDNISOLONE
     Dosage: 1 MG/KG/BODY WEIGHT (BW) 5-7.5 MG/DAY
     Route: 065
     Dates: start: 2010
  10. PREDNISOLONE [Suspect]
     Active Substance: PREDNISOLONE
     Indication: Pemphigus
     Dosage: 5-7.5 MG
     Route: 065
  11. RITUXIMAB [Suspect]
     Active Substance: RITUXIMAB
     Indication: Pemphigus
     Dosage: 375 MG/M2
     Route: 042
     Dates: start: 201506, end: 201512
  12. RITUXIMAB [Suspect]
     Active Substance: RITUXIMAB
     Dosage: 2 CYCLES  CUMULATIVE DOSE 3.6 G
     Route: 065
     Dates: start: 201404

REACTIONS (3)
  - Oropharyngeal squamous cell carcinoma [Recovered/Resolved]
  - Human papilloma virus test positive [Unknown]
  - Dysphagia [Unknown]

NARRATIVE: CASE EVENT DATE: 20180101
